FAERS Safety Report 21501951 (Version 2)
Quarter: 2023Q2

REPORT INFORMATION
  Report Type: Report from Study
  Country: US (occurrence: None)
  Receive Date: 20221025
  Receipt Date: 20230614
  Transmission Date: 20230721
  Serious: Yes (Hospitalization)
  Sender: FDA-Public Use
  Company Number: US-ROCHE-3203655

PATIENT
  Age: 57 Year
  Sex: Male
  Weight: 97 kg

DRUGS (14)
  1. ATEZOLIZUMAB [Suspect]
     Active Substance: ATEZOLIZUMAB
     Indication: Squamous cell carcinoma of head and neck
     Route: 065
     Dates: start: 20220407, end: 20220714
  2. CISPLATIN [Suspect]
     Active Substance: CISPLATIN
     Indication: Squamous cell carcinoma of head and neck
     Route: 065
     Dates: start: 20220412, end: 20220516
  3. PROCHLORPERAZINE [Concomitant]
     Active Substance: PROCHLORPERAZINE
  4. AMOXICILLIN [Concomitant]
     Active Substance: AMOXICILLIN
  5. CHLORHEXIDINE [Concomitant]
     Active Substance: CHLORHEXIDINE
  6. DEXAMETHASONE [Concomitant]
     Active Substance: DEXAMETHASONE
  7. FLUCONAZOLE [Concomitant]
     Active Substance: FLUCONAZOLE
  8. ACETAMINOPHEN\HYDROCODONE [Concomitant]
     Active Substance: ACETAMINOPHEN\HYDROCODONE
  9. IBUPROFEN [Concomitant]
     Active Substance: IBUPROFEN
  10. LORAZEPAM [Concomitant]
     Active Substance: LORAZEPAM
  11. HYDROCHLOROTHIAZIDE\LOSARTAN [Concomitant]
     Active Substance: HYDROCHLOROTHIAZIDE\LOSARTAN
  12. METHOCARBAMOL [Concomitant]
     Active Substance: METHOCARBAMOL
  13. ONDANSETRON [Concomitant]
     Active Substance: ONDANSETRON
  14. METOPROLOL [Concomitant]
     Active Substance: METOPROLOL

REACTIONS (6)
  - Neck pain [Not Recovered/Not Resolved]
  - Dysphagia [Unknown]
  - Dyspnoea [Unknown]
  - Aspiration [Unknown]
  - Localised oedema [Unknown]
  - Pain [Unknown]

NARRATIVE: CASE EVENT DATE: 20220423
